FAERS Safety Report 5394314-9 (Version None)
Quarter: 2007Q3

REPORT INFORMATION
  Report Type: 
  Country: None (occurrence: None)
  Receive Date: 20070723
  Receipt Date: 20070523
  Transmission Date: 20080115
  Serious: No
  Sender: FDA-Public Use
  Company Number: A0652686A

PATIENT
  Age: 59 Year
  Sex: Male

DRUGS (7)
  1. AVANDIA [Suspect]
     Dosage: 4MG PER DAY
     Route: 048
     Dates: end: 20070518
  2. METFORMIN HCL [Concomitant]
  3. GLUCOTROL [Concomitant]
  4. MORPHINE [Concomitant]
  5. ANTIBIOTIC [Concomitant]
  6. ASPIRIN [Concomitant]
  7. VITAMIN [Concomitant]

REACTIONS (3)
  - DIARRHOEA [None]
  - DIZZINESS [None]
  - SOMNOLENCE [None]
